FAERS Safety Report 15596186 (Version 1)
Quarter: 2018Q4

REPORT INFORMATION
  Report Type: Spontaneous
  Country: JP (occurrence: JP)
  Receive Date: 20181108
  Receipt Date: 20181108
  Transmission Date: 20190205
  Serious: Yes (Life-Threatening, Hospitalization, Other)
  Sender: FDA-Public Use
  Company Number: JP-PFIZER INC-2018278060

PATIENT
  Age: 52 Year
  Sex: Female
  Weight: 58.4 kg

DRUGS (4)
  1. PROVERA [Suspect]
     Active Substance: MEDROXYPROGESTERONE ACETATE
     Indication: OVARIAN FAILURE
     Dosage: UNK
     Dates: start: 20180410, end: 201805
  2. PREMARIN [Suspect]
     Active Substance: ESTROGENS, CONJUGATED
     Indication: OVARIAN FAILURE
     Dosage: 1 DF, ALTERNATE DAY(EVERY OTHER DAY)
     Route: 048
     Dates: start: 20180410, end: 201805
  3. PREMARIN [Suspect]
     Active Substance: ESTROGENS, CONJUGATED
     Indication: MENOPAUSAL SYMPTOMS
  4. PROVERA [Suspect]
     Active Substance: MEDROXYPROGESTERONE ACETATE
     Indication: MENOPAUSAL SYMPTOMS

REACTIONS (3)
  - Pulmonary embolism [Recovered/Resolved with Sequelae]
  - Deep vein thrombosis [Unknown]
  - Pulmonary hypertension [Unknown]

NARRATIVE: CASE EVENT DATE: 201805
